FAERS Safety Report 24799593 (Version 1)
Quarter: 2025Q1

REPORT INFORMATION
  Report Type: Spontaneous
  Country: US (occurrence: None)
  Receive Date: 20250102
  Receipt Date: 20250102
  Transmission Date: 20250409
  Serious: Yes (Hospitalization)
  Sender: FDA-CTU
  Company Number: None

PATIENT
  Sex: Male

DRUGS (3)
  1. MYCOPHENOLIC ACID [Suspect]
     Active Substance: MYCOPHENOLIC ACID
     Indication: Renal transplant
     Route: 048
     Dates: start: 20200213
  2. ENVARSUS XR [Concomitant]
     Active Substance: TACROLIMUS
  3. MORPHINE SUL TAB 30MG [Concomitant]

REACTIONS (1)
  - Therapeutic procedure [None]
